FAERS Safety Report 9824771 (Version 1)
Quarter: 2014Q1

REPORT INFORMATION
  Report Type: Spontaneous
  Country: US (occurrence: US)
  Receive Date: 20140115
  Receipt Date: 20140115
  Transmission Date: 20141002
  Serious: No
  Sender: FDA-Public Use
  Company Number: US-B.I. PHARMACEUTICALS,INC./RIDGEFIELD-2014-BI-00526BP

PATIENT
  Age: 73 Year
  Sex: Male
  Weight: 68 kg

DRUGS (3)
  1. SPIRIVA [Suspect]
     Indication: CHRONIC OBSTRUCTIVE PULMONARY DISEASE
     Dosage: 18 MCG
     Route: 055
     Dates: start: 2008
  2. CARAFATE [Concomitant]
     Indication: GASTRIC ULCER
     Dosage: STRENGTH: 1 GM PER 10 ML; DAILY DOSE: 1 GM
     Route: 048
  3. NEXIUM [Concomitant]
     Indication: GASTRIC ULCER
     Dosage: 40 MG
     Route: 048

REACTIONS (3)
  - Dysphonia [Not Recovered/Not Resolved]
  - Cough [Not Recovered/Not Resolved]
  - Gastric ulcer [Recovered/Resolved]
